FAERS Safety Report 13902499 (Version 1)
Quarter: 2017Q3

REPORT INFORMATION
  Report Type: Spontaneous
  Country: US (occurrence: US)
  Receive Date: 20170824
  Receipt Date: 20170824
  Transmission Date: 20171127
  Serious: No
  Sender: FDA-Public Use
  Company Number: US-ROCHE-1130241

PATIENT
  Sex: Female

DRUGS (12)
  1. HERCEPTIN [Suspect]
     Active Substance: TRASTUZUMAB
     Dosage: AT THE RATE OF 999CC PER HOUR
     Route: 065
     Dates: start: 19990222
  2. BENADRYL [Concomitant]
     Active Substance: DIPHENHYDRAMINE HYDROCHLORIDE
     Route: 042
     Dates: start: 19981125
  3. BENADRYL [Concomitant]
     Active Substance: DIPHENHYDRAMINE HYDROCHLORIDE
     Route: 042
     Dates: start: 19981204
  4. HERCEPTIN [Suspect]
     Active Substance: TRASTUZUMAB
     Indication: METASTASES TO BONE
     Dosage: 97 MG ADDED TO IV FLUIDS
     Route: 065
     Dates: start: 19981204
  5. HERCEPTIN [Suspect]
     Active Substance: TRASTUZUMAB
     Dosage: 97 MG AT THE RATE OF 999CC PER HOUR
     Route: 065
     Dates: start: 19990303
  6. HERCEPTIN [Suspect]
     Active Substance: TRASTUZUMAB
     Dosage: MAINTAINENCE DOSE
     Route: 065
  7. BENADRYL [Concomitant]
     Active Substance: DIPHENHYDRAMINE HYDROCHLORIDE
     Route: 042
     Dates: start: 19990222
  8. SERZONE [Concomitant]
     Active Substance: NEFAZODONE HYDROCHLORIDE
  9. BENADRYL [Concomitant]
     Active Substance: DIPHENHYDRAMINE HYDROCHLORIDE
     Route: 042
     Dates: start: 19990303
  10. HERCEPTIN [Suspect]
     Active Substance: TRASTUZUMAB
     Indication: BREAST CANCER
     Dosage: 97 MG AT THE RATE OF 999 CC PER HOUR
     Route: 065
     Dates: start: 19981125
  11. HERCEPTIN [Suspect]
     Active Substance: TRASTUZUMAB
     Dosage: LOADING DOSE
     Route: 065
  12. TYLENOL [Concomitant]
     Active Substance: ACETAMINOPHEN

REACTIONS (2)
  - Chest pain [Unknown]
  - Pain [Unknown]
